FAERS Safety Report 19001943 (Version 1)
Quarter: 2021Q1

REPORT INFORMATION
  Report Type: Spontaneous
  Country: US (occurrence: US)
  Receive Date: 20210312
  Receipt Date: 20210312
  Transmission Date: 20210420
  Serious: Yes (Hospitalization)
  Sender: FDA-Public Use
  Company Number: None

PATIENT
  Sex: Male

DRUGS (2)
  1. VITAMIN B12 [Concomitant]
     Active Substance: CYANOCOBALAMIN
  2. HUMIRA [Suspect]
     Active Substance: ADALIMUMAB
     Indication: CROHN^S DISEASE
     Dosage: ?          OTHER FREQUENCY:EVERY TWO WEEKS;?
     Route: 058
     Dates: start: 20200226

REACTIONS (8)
  - Diarrhoea [None]
  - Condition aggravated [None]
  - Muscle spasms [None]
  - Therapy interrupted [None]
  - Postoperative wound infection [None]
  - Cholecystectomy [None]
  - Quality of life decreased [None]
  - Fatigue [None]
